FAERS Safety Report 8365703-5 (Version None)
Quarter: 2012Q2

REPORT INFORMATION
  Report Type: 
  Country: None (occurrence: None)
  Receive Date: 20120516
  Receipt Date: 20120510
  Transmission Date: 20120825
  Serious: Yes (Hospitalization)
  Sender: FDA-Public Use
  Company Number: CH-AMGEN-CHESP2012029388

PATIENT
  Age: 72 Year
  Sex: Female
  Weight: 58 kg

DRUGS (3)
  1. PROLIA [Suspect]
     Indication: OSTEOPOROSIS
     Dosage: 60 MG, Q6MO
     Route: 058
     Dates: start: 20111123
  2. BISOPROLOL FUMARATE [Concomitant]
     Indication: CARDIOMYOPATHY
     Dosage: 2.5 MG, QD
     Route: 048
  3. ZESTORETIC [Concomitant]
     Indication: CARDIOMYOPATHY
     Dosage: UNK UNK, QD
     Route: 048

REACTIONS (3)
  - ASTHENIA [None]
  - SYNCOPE [None]
  - OEDEMA [None]
